FAERS Safety Report 13146858 (Version 1)
Quarter: 2017Q1

REPORT INFORMATION
  Report Type: Spontaneous
  Country: CA (occurrence: CA)
  Receive Date: 20170125
  Receipt Date: 20170125
  Transmission Date: 20170428
  Serious: Yes (Life-Threatening, Hospitalization, Other)
  Sender: FDA-Public Use
  Company Number: CA-TEVA-732244ACC

PATIENT
  Age: 41 Year
  Sex: Male
  Weight: 80 kg

DRUGS (7)
  1. PROCHLORPERAZINE. [Concomitant]
     Active Substance: PROCHLORPERAZINE
  2. CISPLATIN INJECTION, BP SINGLE DOSE VIALS. 10MG/10ML AND 50MG/50ML.PRE [Suspect]
     Active Substance: CISPLATIN
     Indication: TESTIS CANCER
     Route: 042
  3. BLEOMYCIN SULPHATE FOR INJECTION USP [Concomitant]
  4. ETOPOSIDE. [Concomitant]
     Active Substance: ETOPOSIDE
  5. EMEND [Concomitant]
     Active Substance: APREPITANT
  6. GRANISETRON [Concomitant]
     Active Substance: GRANISETRON
  7. DEXAMETHASONE. [Concomitant]
     Active Substance: DEXAMETHASONE

REACTIONS (1)
  - Intracranial venous sinus thrombosis [Unknown]
